FAERS Safety Report 5729765-3 (Version None)
Quarter: 2008Q2

REPORT INFORMATION
  Report Type: 
  Country: None (occurrence: None)
  Receive Date: 20080501
  Receipt Date: 20080425
  Transmission Date: 20081010
  Serious: Yes (Hospitalization)
  Sender: FDA-Public Use
  Company Number: 2008-02643

PATIENT
  Age: 24 Year
  Sex: Female

DRUGS (1)
  1. COLCHICUM JTL LIQ [Suspect]
     Indication: FAMILIAL MEDITERRANEAN FEVER
     Dosage: 1 MG, DAILY, ORAL
     Route: 048
     Dates: start: 19910101, end: 19920101

REACTIONS (3)
  - MYOPATHY TOXIC [None]
  - RENAL FAILURE [None]
  - RHABDOMYOLYSIS [None]
